FAERS Safety Report 5483975-1 (Version None)
Quarter: 2007Q4

REPORT INFORMATION
  Report Type: 
  Country: None (occurrence: None)
  Receive Date: 20071010
  Receipt Date: 20071010
  Transmission Date: 20080405
  Serious: Yes (Other)
  Sender: FDA-Public Use
  Company Number: None

PATIENT
  Age: 62 Year
  Sex: Female
  Weight: 56.6996 kg

DRUGS (1)
  1. FOLIC ACID [Suspect]
     Indication: CEREBRAL DISORDER
     Dosage: 1 TABLET DAILY PO
     Route: 048
     Dates: start: 20071001, end: 20071006

REACTIONS (2)
  - DIZZINESS [None]
  - NAUSEA [None]
